FAERS Safety Report 8989859 (Version 1)
Quarter: 2012Q4

REPORT INFORMATION
  Report Type: Report from Study
  Country: US (occurrence: US)
  Receive Date: 20121228
  Receipt Date: 20121228
  Transmission Date: 20130627
  Serious: Yes (Other)
  Sender: FDA-Public Use
  Company Number: US-GLAXOSMITHKLINE-A1006502A

PATIENT
  Age: 63 Year
  Sex: Female
  Weight: 46.4 kg

DRUGS (9)
  1. PAZOPANIB [Suspect]
     Indication: LUNG ADENOCARCINOMA METASTATIC
     Dosage: 800MG Per day
     Route: 048
     Dates: start: 20120921, end: 20121010
  2. ASPIRIN [Concomitant]
     Dosage: 325MG As required
     Route: 048
     Dates: start: 201109
  3. HYDROCODONE [Concomitant]
     Route: 048
     Dates: start: 20110922
  4. PROCHLORPERAZINE [Concomitant]
     Dosage: 10MG As required
     Dates: start: 201109
  5. NYSTATIN [Concomitant]
     Route: 048
     Dates: start: 20120910
  6. MEGESTROL [Concomitant]
     Dates: start: 20120820, end: 20121108
  7. MORPHINE [Concomitant]
     Dosage: 15MG As required
     Route: 048
  8. LOPERAMIDE [Concomitant]
     Dosage: 2MG As required
     Dates: start: 20121029
  9. LEVOTHYROXINE [Concomitant]
     Dosage: 25MCG Per day
     Route: 048
     Dates: start: 20121011

REACTIONS (2)
  - Oedema [Unknown]
  - Electrocardiogram change [Unknown]
